FAERS Safety Report 7817055-4 (Version None)
Quarter: 2011Q4

REPORT INFORMATION
  Report Type: 
  Country: None (occurrence: None)
  Receive Date: 20111017
  Receipt Date: 20111003
  Transmission Date: 20120403
  Serious: Yes (Other)
  Sender: FDA-Public Use
  Company Number: PHHY2011IT87120

PATIENT
  Sex: Male

DRUGS (3)
  1. VALSARTAN  AND HYDROCHLOROTHIAZIDE [Suspect]
     Indication: HYPERTENSION
     Dosage: 160 MG VALS/12.5 MG HCT, PER DAY
     Route: 048
     Dates: start: 20110101
  2. CARDURA [Suspect]
     Indication: HYPERTENSION
     Dosage: 1 DF (4 MG PER DAY), UNK
     Route: 048
     Dates: start: 20080101
  3. ALLOPURINOL [Concomitant]
     Indication: HYPERURICAEMIA
     Dosage: 300 MG, UNK

REACTIONS (5)
  - BLOOD PRESSURE DECREASED [None]
  - FACE INJURY [None]
  - FALL [None]
  - SYNCOPE [None]
  - JOINT INJURY [None]
